FAERS Safety Report 20840214 (Version 3)
Quarter: 2022Q2

REPORT INFORMATION
  Report Type: Spontaneous
  Country: US (occurrence: US)
  Receive Date: 20220517
  Receipt Date: 20220627
  Transmission Date: 20220721
  Serious: Yes (Life-Threatening, Hospitalization, Other)
  Sender: FDA-Public Use
  Company Number: US-PFIZER INC-202200687623

PATIENT
  Age: 57 Year
  Sex: Female
  Weight: 65.76 kg

DRUGS (2)
  1. PAXLOVID [Suspect]
     Active Substance: NIRMATRELVIR\RITONAVIR
     Indication: COVID-19 treatment
     Dosage: UNK
     Route: 048
     Dates: start: 20220408, end: 20220412
  2. NORVASC [Concomitant]
     Active Substance: AMLODIPINE BESYLATE
     Indication: Hypertension
     Dosage: 10 MG, DAILY
     Route: 048
     Dates: start: 20050104, end: 20220418

REACTIONS (15)
  - Cardiac arrest [Recovered/Resolved with Sequelae]
  - Coronary artery thrombosis [Recovered/Resolved with Sequelae]
  - Myocardial infarction [Recovered/Resolved with Sequelae]
  - Acute myocardial infarction [Recovering/Resolving]
  - Torsade de pointes [Recovering/Resolving]
  - Ventricular fibrillation [Recovering/Resolving]
  - Vascular stent thrombosis [Recovering/Resolving]
  - Atrioventricular block complete [Unknown]
  - Coronary artery occlusion [Unknown]
  - Platelet count decreased [Not Recovered/Not Resolved]
  - Haemoglobin decreased [Unknown]
  - Haematocrit decreased [Unknown]
  - Coagulation factor VIII level increased [Unknown]
  - Coagulopathy [Unknown]
  - Diastolic dysfunction [Unknown]

NARRATIVE: CASE EVENT DATE: 20220418
